FAERS Safety Report 24061237 (Version 5)
Quarter: 2025Q1

REPORT INFORMATION
  Report Type: Spontaneous
  Country: AU (occurrence: AU)
  Receive Date: 20240708
  Receipt Date: 20250318
  Transmission Date: 20250409
  Serious: Yes (Life-Threatening, Hospitalization, Other)
  Sender: MYLAN
  Company Number: AU-MYLANLABS-2024M1062541

PATIENT
  Age: 40 Year
  Sex: Male

DRUGS (17)
  1. CLOZARIL [Suspect]
     Active Substance: CLOZAPINE
     Indication: Schizophrenia
     Dates: start: 20240531, end: 20240622
  2. CLOZARIL [Suspect]
     Active Substance: CLOZAPINE
  3. CLOZARIL [Suspect]
     Active Substance: CLOZAPINE
  4. FLUPENTIXOL DECANOATE [Concomitant]
     Active Substance: FLUPENTIXOL DECANOATE
  5. FLUPENTIXOL DECANOATE [Concomitant]
     Active Substance: FLUPENTIXOL DECANOATE
     Dosage: 300 MILLIGRAM, QW
  6. BENZTROPINE [Concomitant]
     Active Substance: BENZTROPINE
     Dosage: 2 MILLIGRAM, AM (MANE)
  7. CHLORPROMAZINE [Concomitant]
     Active Substance: CHLORPROMAZINE
     Dosage: 600 MILLIGRAM, PM (NOCTE)
  8. CHLORPROMAZINE [Concomitant]
     Active Substance: CHLORPROMAZINE
     Dosage: 300 MILLIGRAM, TID (TDS)
  9. MIANSERIN [Concomitant]
     Active Substance: MIANSERIN
     Dosage: 50 MILLIGRAM, PM (NOCTE)
  10. OLANZAPINE [Concomitant]
     Active Substance: OLANZAPINE
     Dosage: 30 MILLIGRAM, PM (NOCTE)
  11. OLANZAPINE [Concomitant]
     Active Substance: OLANZAPINE
     Dosage: 10 MILLIGRAM, AM (MANE)
  12. OLANZAPINE [Concomitant]
     Active Substance: OLANZAPINE
     Dosage: 20 MILLIGRAM, PM (NOCTE)
  13. HALOPERIDOL [Concomitant]
     Active Substance: HALOPERIDOL
  14. LORAZEPAM [Concomitant]
     Active Substance: LORAZEPAM
  15. PROMETHAZINE [Concomitant]
     Active Substance: PROMETHAZINE HYDROCHLORIDE
  16. FLUPENTIXOL [Concomitant]
     Active Substance: FLUPENTIXOL
     Dosage: 300 MILLIGRAM, QW
  17. PAROXETINE [Concomitant]
     Active Substance: PAROXETINE
     Dosage: 40 MILLIGRAM, PM  (NOCTE)

REACTIONS (13)
  - Loss of consciousness [Unknown]
  - Syncope [Unknown]
  - Polydipsia [Unknown]
  - Hyponatraemia [Unknown]
  - Depressed level of consciousness [Unknown]
  - Seizure [Unknown]
  - Meningococcal bacteraemia [Unknown]
  - Malaise [Unknown]
  - Head injury [Unknown]
  - Tongue injury [Unknown]
  - Influenza [Unknown]
  - White blood cell count decreased [Not Recovered/Not Resolved]
  - Neutrophil count decreased [Not Recovered/Not Resolved]

NARRATIVE: CASE EVENT DATE: 20240701
